FAERS Safety Report 7930427-2 (Version None)
Quarter: 2011Q4

REPORT INFORMATION
  Report Type: 
  Country: None (occurrence: None)
  Receive Date: 20111121
  Receipt Date: 20111107
  Transmission Date: 20120403
  Serious: Yes (Life-Threatening, Hospitalization)
  Sender: FDA-Public Use
  Company Number: NO-ROCHE-1011770

PATIENT
  Sex: Female

DRUGS (4)
  1. CENTYL MED KALIUMKLORID [Concomitant]
     Indication: HYPERTENSION
     Dates: start: 20110101
  2. ALENDRONATE SODIUM [Suspect]
     Indication: OSTEOPOROSIS
     Route: 048
     Dates: start: 20110101
  3. LUCENTIS [Suspect]
     Indication: MACULAR DEGENERATION
     Route: 050
     Dates: start: 20090622, end: 20110426
  4. DIURAL (DENMARK) [Concomitant]
     Indication: OEDEMA
     Dates: start: 20110101

REACTIONS (6)
  - MYOCARDIAL INFARCTION [None]
  - ANGINA PECTORIS [None]
  - RENAL FAILURE [None]
  - MALAISE [None]
  - MYOCARDIAL ISCHAEMIA [None]
  - ANAEMIA [None]
